FAERS Safety Report 4278494-4 (Version None)
Quarter: 2004Q1

REPORT INFORMATION
  Report Type: 
  Country: None (occurrence: None)
  Receive Date: 20040123
  Receipt Date: 20040121
  Transmission Date: 20041129
  Serious: Yes (Hospitalization)
  Sender: FDA-Public Use
  Company Number: WAES 0401ESP00016

PATIENT
  Age: 76 Year
  Sex: Female

DRUGS (3)
  1. ASPIRIN [Suspect]
     Route: 048
     Dates: start: 20030301
  2. VIOXX [Suspect]
     Route: 048
     Dates: start: 20030121
  3. TELMISARTAN [Concomitant]
     Route: 048
     Dates: start: 20030129

REACTIONS (2)
  - ANAEMIA [None]
  - LOWER GASTROINTESTINAL HAEMORRHAGE [None]
